FAERS Safety Report 10363143 (Version 1)
Quarter: 2014Q3

REPORT INFORMATION
  Report Type: Report from Study
  Country: BR (occurrence: BR)
  Receive Date: 20140805
  Receipt Date: 20140805
  Transmission Date: 20150326
  Serious: Yes (Other)
  Sender: FDA-Public Use
  Company Number: BR-ABBVIE-14K-020-1266751-00

PATIENT
  Age: 71 Year
  Sex: Female
  Weight: 66 kg

DRUGS (4)
  1. METHOTREXATE [Concomitant]
     Active Substance: METHOTREXATE
     Indication: PRODUCT USED FOR UNKNOWN INDICATION
     Dosage: SOMETIMES
  2. HUMIRA [Suspect]
     Active Substance: ADALIMUMAB
     Indication: RHEUMATOID ARTHRITIS
     Route: 058
     Dates: start: 20100101, end: 20140301
  3. LUTEIN / ZEAXANTHIN / ASSOCIATION (OCUVITE LUTEIN) [Concomitant]
     Indication: EYE DISORDER
     Route: 048
     Dates: start: 19990101
  4. PROFENID [Concomitant]
     Active Substance: KETOPROFEN
     Indication: RHEUMATOID ARTHRITIS
     Route: 048

REACTIONS (11)
  - Benign breast neoplasm [Not Recovered/Not Resolved]
  - Drug ineffective [Not Recovered/Not Resolved]
  - Device dislocation [Unknown]
  - Rheumatic disorder [Unknown]
  - Hernia pain [Unknown]
  - Frequent bowel movements [Unknown]
  - Abdominal pain [Unknown]
  - Pain [Unknown]
  - Inguinal hernia [Recovered/Resolved]
  - Colon cancer [Recovered/Resolved]
  - Burning sensation [Not Recovered/Not Resolved]

NARRATIVE: CASE EVENT DATE: 20100601
